FAERS Safety Report 19244631 (Version 2)
Quarter: 2021Q2

REPORT INFORMATION
  Report Type: Report from Study
  Country: CA (occurrence: CA)
  Receive Date: 20210511
  Receipt Date: 20210517
  Transmission Date: 20210717
  Serious: Yes (Hospitalization)
  Sender: FDA-Public Use
  Company Number: CA-CELGENEUS-CAN-20210501108

PATIENT
  Age: 75 Year
  Sex: Female
  Weight: 61 kg

DRUGS (30)
  1. NAB?PACLITAXEL [Suspect]
     Active Substance: PACLITAXEL
     Dosage: 100 MILLIGRAM
     Route: 042
     Dates: start: 20200702, end: 20200702
  2. OLAPARIB. [Suspect]
     Active Substance: OLAPARIB
     Dosage: 600 MILLIGRAM
     Route: 048
     Dates: start: 20200724, end: 20200806
  3. CARBOPLATIN. [Concomitant]
     Active Substance: CARBOPLATIN
     Indication: NON-SMALL CELL LUNG CANCER STAGE IV
     Dosage: AUC OF 6 MG/ML/MIN ON DAY 1
     Route: 042
     Dates: start: 20200312, end: 20200514
  4. LYRICA [Concomitant]
     Active Substance: PREGABALIN
     Indication: PAIN IN EXTREMITY
     Dosage: 600 MILLIGRAM
     Route: 048
     Dates: start: 201001, end: 20200720
  5. VOLTAREN [Concomitant]
     Active Substance: DICLOFENAC SODIUM
     Indication: OSTEOARTHRITIS
     Dosage: 2 DOSAGE FORMS
     Route: 003
     Dates: start: 201701
  6. NAB?PACLITAXEL [Suspect]
     Active Substance: PACLITAXEL
     Indication: NON-SMALL CELL LUNG CANCER STAGE IV
     Dosage: 100 MILLIGRAM
     Route: 042
     Dates: start: 20200312, end: 20200625
  7. LACTULOSE. [Concomitant]
     Active Substance: LACTULOSE
     Indication: CONSTIPATION
     Dosage: 60 MILLILITER
     Route: 048
     Dates: start: 20200615
  8. OLAPARIB. [Suspect]
     Active Substance: OLAPARIB
     Indication: NON-SMALL CELL LUNG CANCER STAGE IV
     Dosage: 600 MILLIGRAM
     Route: 048
     Dates: start: 20200723, end: 20200723
  9. MK?3475 [Suspect]
     Active Substance: PEMBROLIZUMAB
     Dosage: 200 MILLIGRAM
     Route: 042
     Dates: start: 20200618, end: 20200618
  10. CALCIUM CARBONATE. [Concomitant]
     Active Substance: CALCIUM CARBONATE
     Indication: OSTEOPOROSIS PROPHYLAXIS
     Dosage: 500 MILLIGRAM
     Route: 048
     Dates: start: 201701
  11. COLACE [Concomitant]
     Active Substance: DOCUSATE SODIUM
     Indication: CONSTIPATION
     Route: 048
     Dates: start: 20190604
  12. HYDROMORPHONE [Concomitant]
     Active Substance: HYDROMORPHONE
     Dosage: TOTAL DAILY DOSE: 2 MG, PRN
     Route: 048
     Dates: start: 20200721, end: 20200806
  13. HYDROMORPH CONTIN [Concomitant]
     Active Substance: HYDROMORPHONE
     Indication: PAIN IN EXTREMITY
     Dosage: 12 MILLIGRAM
     Route: 048
     Dates: start: 20200228, end: 20200721
  14. STEMETIL [Concomitant]
     Active Substance: PROCHLORPERAZINE
     Indication: NAUSEA
     Dosage: 10 MILLIGRAM
     Route: 048
     Dates: start: 20200312
  15. PANTOLOC [Concomitant]
     Active Substance: PANTOPRAZOLE SODIUM
     Indication: GASTRIC ULCER
     Dosage: 40 MILLIGRAM
     Route: 048
     Dates: start: 197401
  16. GAVISCON [Concomitant]
     Active Substance: ALUMINUM HYDROXIDE\MAGNESIUM CARBONATE
     Indication: DYSPEPSIA
     Route: 048
     Dates: start: 197701
  17. ATIVAN [Concomitant]
     Active Substance: LORAZEPAM
     Indication: INSOMNIA
     Dosage: 1 MILLIGRAM
     Route: 048
     Dates: start: 200001
  18. LAX A DAY [Concomitant]
     Indication: CONSTIPATION
     Dosage: 17 GRAM
     Route: 048
     Dates: start: 20200130
  19. HYDROMORPHONE [Concomitant]
     Active Substance: HYDROMORPHONE
     Indication: PAIN IN EXTREMITY
     Route: 048
     Dates: start: 20200211, end: 20200720
  20. ST IVES DAILY HYDRATING LOTION WITH VITAMIN E [Concomitant]
     Indication: PRURITUS
     Dosage: 1 DOSAGE FORMS
     Route: 003
     Dates: start: 20200603, end: 20200716
  21. VITALUX HEALTHY EYES [Concomitant]
     Active Substance: MINERALS\VITAMINS
     Indication: PROPHYLAXIS
     Dosage: 2 DOSAGE FORMS
     Route: 048
     Dates: start: 201902
  22. CARBOPLATIN. [Concomitant]
     Active Substance: CARBOPLATIN
     Dosage: AUC OF 6 MG/ML/MIN ON DAY 1
     Route: 042
     Dates: start: 20200618, end: 20200618
  23. CALCIUM/ VITAMIN D [Concomitant]
     Indication: OSTEOPOROSIS PROPHYLAXIS
     Route: 048
     Dates: start: 201701
  24. AREDIA [Concomitant]
     Active Substance: PAMIDRONATE DISODIUM
     Indication: OSTEOPOROSIS PROPHYLAXIS
     Dosage: 3 MILLIGRAM
     Route: 042
     Dates: start: 20200214
  25. ENSURE [Concomitant]
     Active Substance: AMINO ACIDS\DEXTROSE\ELECTROLYTES NOS\SOYBEAN OIL\VITAMINS
     Indication: DECREASED APPETITE
     Dosage: 500 MILLILITER
     Route: 048
     Dates: start: 20200329
  26. MK?3475 [Suspect]
     Active Substance: PEMBROLIZUMAB
     Indication: NON-SMALL CELL LUNG CANCER STAGE IV
     Dosage: 200 MILLIEQUIVALENTS
     Route: 042
     Dates: start: 20200312
  27. ACETAMINOPHEN. [Concomitant]
     Active Substance: ACETAMINOPHEN
     Indication: ARTHRALGIA
     Route: 048
     Dates: start: 197001
  28. MOTILIUM [Concomitant]
     Active Substance: DOMPERIDONE
     Indication: GASTRIC ULCER
     Route: 048
     Dates: start: 197401
  29. BUPIVACAINE HYDROCHLORIDE/METHYLPREDNISOLONE ACETATE [Concomitant]
     Indication: ARTHRALGIA
     Dosage: TOTAL DAILY DOSAGE: 1 SYRINGE, PRN
     Route: 008
     Dates: start: 198001
  30. ALBUTEROL SULFATE/IPRATROPIUM BROMIDE [Concomitant]
     Active Substance: ALBUTEROL SULFATE\IPRATROPIUM BROMIDE
     Indication: ASTHMA
     Dosage: 2 DOSAGE FORMS
     Route: 055
     Dates: start: 201501

REACTIONS (1)
  - Chronic obstructive pulmonary disease [Recovered/Resolved]

NARRATIVE: CASE EVENT DATE: 20200721
